FAERS Safety Report 21745943 (Version 1)
Quarter: 2022Q4

REPORT INFORMATION
  Report Type: Spontaneous
  Country: CA (occurrence: None)
  Receive Date: 20221219
  Receipt Date: 20221219
  Transmission Date: 20230113
  Serious: Yes (Hospitalization)
  Sender: FDA-Public Use
  Company Number: CA-ROCHE-3244825

PATIENT
  Sex: Male

DRUGS (22)
  1. ACTEMRA [Suspect]
     Active Substance: TOCILIZUMAB
     Indication: COVID-19 pneumonia
     Dosage: NOT SPECIFIED
     Route: 065
  2. RITUXIMAB [Suspect]
     Active Substance: RITUXIMAB
     Indication: Interstitial lung disease
     Route: 041
  3. ACETAMINOPHEN [Concomitant]
     Active Substance: ACETAMINOPHEN
     Route: 048
  4. ALENDRONATE SODIUM [Concomitant]
     Active Substance: ALENDRONATE SODIUM
  5. AMLODIPINE [Concomitant]
     Active Substance: AMLODIPINE BESYLATE
     Route: 065
  6. AMOXICILLIN [Concomitant]
     Active Substance: AMOXICILLIN
  7. ATROVENT [Concomitant]
     Active Substance: IPRATROPIUM BROMIDE
  8. BENADRYL [Concomitant]
     Active Substance: DIPHENHYDRAMINE HYDROCHLORIDE
     Route: 048
  9. CALCIUM [Concomitant]
     Active Substance: CALCIUM
  10. ELIQUIS [Concomitant]
     Active Substance: APIXABAN
  11. GABAPENTIN [Concomitant]
     Active Substance: GABAPENTIN
  12. HYDROCHLOROTHIAZIDE [Concomitant]
     Active Substance: HYDROCHLOROTHIAZIDE
  13. HYDROMORPHONE [Concomitant]
     Active Substance: HYDROMORPHONE
  14. IRON [Concomitant]
     Active Substance: IRON
     Indication: Formication
  15. CELLCEPT [Concomitant]
     Active Substance: MYCOPHENOLATE MOFETIL
  16. PANTOPRAZOLE [Concomitant]
     Active Substance: PANTOPRAZOLE
  17. PREDNISONE [Concomitant]
     Active Substance: PREDNISONE
  18. RAMIPRIL [Concomitant]
     Active Substance: RAMIPRIL
  19. RANITIDINE [Concomitant]
     Active Substance: RANITIDINE
  20. SOLU-MEDROL [Concomitant]
     Active Substance: METHYLPREDNISOLONE SODIUM SUCCINATE
     Route: 042
  21. SULFATRIM [Concomitant]
     Active Substance: SULFAMETHOXAZOLE\TRIMETHOPRIM
  22. TYLENOL WITH CODEINE [Concomitant]
     Active Substance: ACETAMINOPHEN\CODEINE PHOSPHATE

REACTIONS (2)
  - COVID-19 pneumonia [Unknown]
  - Off label use [Unknown]
